FAERS Safety Report 16778576 (Version 2)
Quarter: 2019Q4

REPORT INFORMATION
  Report Type: Spontaneous
  Country: US (occurrence: US)
  Receive Date: 20190906
  Receipt Date: 20191203
  Transmission Date: 20200122
  Serious: Yes (Other)
  Sender: FDA-Public Use
  Company Number: US-009507513-1909USA000297

PATIENT
  Age: 18 Year
  Sex: Female
  Weight: 56.69 kg

DRUGS (1)
  1. NEXPLANON [Suspect]
     Active Substance: ETONOGESTREL
     Indication: CONTRACEPTION
     Dosage: 1 IMPLANT, UNK
     Route: 059
     Dates: start: 201407

REACTIONS (7)
  - Syncope [Recovered/Resolved]
  - Complication associated with device [Not Recovered/Not Resolved]
  - Syncope [Recovered/Resolved]
  - Chest discomfort [Recovered/Resolved]
  - Device dislocation [Not Recovered/Not Resolved]
  - Chest discomfort [Recovered/Resolved]
  - Incorrect product administration duration [Unknown]

NARRATIVE: CASE EVENT DATE: 201503
